FAERS Safety Report 18441070 (Version 1)
Quarter: 2020Q4

REPORT INFORMATION
  Report Type: Spontaneous
  Country: JP (occurrence: JP)
  Receive Date: 20201029
  Receipt Date: 20201029
  Transmission Date: 20210114
  Serious: Yes (Hospitalization)
  Sender: FDA-Public Use
  Company Number: JP-STRIDES ARCOLAB LIMITED-2020SP012864

PATIENT
  Age: 74 Year
  Sex: Male

DRUGS (17)
  1. ASPIRIN [ACETYLSALICYLIC ACID] [Concomitant]
     Active Substance: ASPIRIN
     Indication: PRODUCT USED FOR UNKNOWN INDICATION
     Dosage: UNK
     Route: 065
  2. METHYLPREDNISOLONE. [Concomitant]
     Active Substance: METHYLPREDNISOLONE
     Indication: RENAL TRANSPLANT
     Dosage: UNK
     Route: 065
  3. TACROLIMUS. [Interacting]
     Active Substance: TACROLIMUS
     Dosage: UNK, DOSE INCREASED AS PER THE MEASURED CONCENTRATIONS
     Route: 065
  4. SUNITINIB [Interacting]
     Active Substance: SUNITINIB
     Indication: RENAL CELL CARCINOMA
     Dosage: 37.5  MILLIGRAM PER DAY, 2 WEEKS ON AND 1 WEEK OFF
     Route: 048
  5. TACROLIMUS. [Suspect]
     Active Substance: TACROLIMUS
     Indication: RENAL TRANSPLANT
     Dosage: UNK
     Route: 065
  6. EVEROLIMUS. [Interacting]
     Active Substance: EVEROLIMUS
     Indication: RENAL TRANSPLANT
     Dosage: UNK
     Route: 065
  7. BENZBROMARONE [Concomitant]
     Active Substance: BENZBROMARONE
     Indication: PRODUCT USED FOR UNKNOWN INDICATION
     Dosage: UNK
     Route: 065
  8. ESTAZOLAM. [Concomitant]
     Active Substance: ESTAZOLAM
     Indication: PRODUCT USED FOR UNKNOWN INDICATION
     Dosage: UNK
     Route: 065
  9. SODIUM CITRATE. [Concomitant]
     Active Substance: SODIUM CITRATE
     Indication: PRODUCT USED FOR UNKNOWN INDICATION
     Dosage: UNK
     Route: 065
  10. ATORVASTATIN [Concomitant]
     Active Substance: ATORVASTATIN
     Indication: PRODUCT USED FOR UNKNOWN INDICATION
     Dosage: UNK
     Route: 065
  11. FAMOTIDINE. [Concomitant]
     Active Substance: FAMOTIDINE
     Indication: PRODUCT USED FOR UNKNOWN INDICATION
     Dosage: UNK
     Route: 065
  12. SUNITINIB [Interacting]
     Active Substance: SUNITINIB
     Dosage: 25  MILLIGRAM PER DAY, 2 WEEKS ON AND 1 WEEK OFF
     Route: 048
  13. AZELNIDIPINE [Interacting]
     Active Substance: AZELNIDIPINE
     Indication: RENAL TRANSPLANT
     Dosage: UNK
     Route: 065
  14. MIZORIBINE [Concomitant]
     Active Substance: MIZORIBINE
     Indication: RENAL TRANSPLANT
     Dosage: UNK
     Route: 065
  15. POTASSIUM CITRATE. [Concomitant]
     Active Substance: POTASSIUM CITRATE
     Indication: PRODUCT USED FOR UNKNOWN INDICATION
     Dosage: UNK
     Route: 065
  16. EVEROLIMUS. [Interacting]
     Active Substance: EVEROLIMUS
     Dosage: UNK, DOSE INCREASED AS PER THE MEASURED CONCENTRATIONS
     Route: 065
  17. CANDESARTAN CILEXETIL. [Concomitant]
     Active Substance: CANDESARTAN CILEXETIL
     Indication: PRODUCT USED FOR UNKNOWN INDICATION
     Dosage: UNK
     Route: 065

REACTIONS (4)
  - Drug level increased [Recovered/Resolved]
  - Drug interaction [Unknown]
  - Diarrhoea [Recovered/Resolved]
  - Dyspepsia [Unknown]
